FAERS Safety Report 5788423-X (Version None)
Quarter: 2008Q2

REPORT INFORMATION
  Report Type: 
  Country: None (occurrence: None)
  Receive Date: 20080623
  Receipt Date: 20080609
  Transmission Date: 20081010
  Serious: Yes (Hospitalization)
  Sender: FDA-Public Use
  Company Number: 2008AL006605

PATIENT
  Age: 61 Year
  Sex: Female
  Weight: 145.151 kg

DRUGS (1)
  1. DIGOXIN [Suspect]
     Indication: CARDIAC FAILURE
     Dosage: HEART FAILURE

REACTIONS (6)
  - AMNESIA [None]
  - CHEST DISCOMFORT [None]
  - DYSPNOEA [None]
  - FLATULENCE [None]
  - HEART RATE INCREASED [None]
  - MUSCULAR WEAKNESS [None]
